FAERS Safety Report 24011258 (Version 1)
Quarter: 2024Q2

REPORT INFORMATION
  Report Type: Report from Study
  Country: FR (occurrence: FR)
  Receive Date: 20240625
  Receipt Date: 20240625
  Transmission Date: 20240716
  Serious: Yes (Other)
  Sender: FDA-Public Use
  Company Number: FR-PHARMALEX-2023000009

PATIENT
  Age: 21 Year
  Sex: Male

DRUGS (4)
  1. MORPHINE SULFATE [Suspect]
     Active Substance: MORPHINE SULFATE
     Indication: Analgesic therapy
     Dosage: UNK
     Route: 065
  2. PROPOFOL [Suspect]
     Active Substance: PROPOFOL
     Indication: Sedation
     Dosage: STARTING DOSE 1 MG/KG/H TO MAX DOSAGE 3 MG/KG/H
     Route: 065
  3. KETAMINE [Suspect]
     Active Substance: KETAMINE
     Indication: Sedation
     Dosage: STARTING DOSE 1 MG/KG/H TO MAX DOSAGE 2 MG/KG/H)
     Route: 065
  4. MIDAZOLAM [Suspect]
     Active Substance: MIDAZOLAM
     Indication: Sedation
     Dosage: STARTING DOSE 0.47 MG/KG/H-MAX DOSAGE 1.2 MG/KG/H
     Route: 065

REACTIONS (4)
  - Altered state of consciousness [Unknown]
  - Tachyphylaxis [Unknown]
  - Agitation [Unknown]
  - Product use in unapproved indication [Unknown]
